FAERS Safety Report 24166095 (Version 5)
Quarter: 2025Q4

REPORT INFORMATION
  Report Type: Spontaneous
  Country: GB (occurrence: GB)
  Receive Date: 20240802
  Receipt Date: 20251119
  Transmission Date: 20260117
  Serious: Yes (Life-Threatening, Other)
  Sender: TEVA
  Company Number: EU-LDELTA-NLLD0041940

PATIENT
  Age: 52 Year
  Sex: Male

DRUGS (4)
  1. CISPLATIN [Suspect]
     Active Substance: CISPLATIN
     Indication: Testis cancer
     Dosage: 4 CYCLES; EVERY 3 WEEKS
     Route: 065
     Dates: start: 2025
  2. CLOZAPINE [Suspect]
     Active Substance: CLOZAPINE
     Indication: Product used for unknown indication
     Route: 065
     Dates: start: 20130425
  3. CARBOPLATIN [Suspect]
     Active Substance: CARBOPLATIN
     Indication: Testis cancer
     Dosage: SINGLE CYCLE OF CARBOPLATIN; MEDICATION ERROR, OFF LABEL USE
     Route: 065
     Dates: start: 20230908
  4. ETOPOSIDE [Suspect]
     Active Substance: ETOPOSIDE
     Indication: Testis cancer
     Dosage: 4 CYCLES; EVERY 3 WEEKS; MEDICATION ERROR, OFF LABEL USE
     Route: 065
     Dates: start: 2025

REACTIONS (9)
  - Anaemia [Not Recovered/Not Resolved]
  - Agranulocytosis [Recovering/Resolving]
  - Contraindicated product administered [Not Recovered/Not Resolved]
  - White blood cell count decreased [Recovered/Resolved]
  - Platelet count decreased [Not Recovered/Not Resolved]
  - Neutrophil count decreased [Recovered/Resolved]
  - Thrombocytopenia [Not Recovered/Not Resolved]
  - Neutropenia [Recovering/Resolving]
  - Leukopenia [Recovering/Resolving]

NARRATIVE: CASE EVENT DATE: 20230606
